FAERS Safety Report 8570663-8 (Version None)
Quarter: 2012Q3

REPORT INFORMATION
  Report Type: 
  Country: None (occurrence: None)
  Receive Date: 20120804
  Receipt Date: 20120726
  Transmission Date: 20120928
  Serious: No
  Sender: FDA-Public Use
  Company Number: US-ASTRAZENECA-2012SE53161

PATIENT
  Age: 58 Year
  Sex: Male
  Weight: 86.2 kg

DRUGS (5)
  1. CELEXA [Concomitant]
  2. SEROQUEL [Suspect]
     Indication: SLEEP DISORDER
     Route: 048
     Dates: start: 20100101, end: 20120719
  3. SEROQUEL [Suspect]
     Indication: AFFECTIVE DISORDER
     Route: 048
     Dates: start: 20100101, end: 20120719
  4. HYDROCHLOROTHIAZDE TAB [Concomitant]
  5. TRAMADOL HCL [Concomitant]

REACTIONS (4)
  - INSOMNIA [None]
  - DRUG DOSE OMISSION [None]
  - MOOD SWINGS [None]
  - HYPERTENSION [None]
